FAERS Safety Report 9768142 (Version 3)
Quarter: 2014Q1

REPORT INFORMATION
  Report Type: Spontaneous
  Country: US (occurrence: US)
  Receive Date: 20131217
  Receipt Date: 20140214
  Transmission Date: 20141002
  Serious: No
  Sender: FDA-Public Use
  Company Number: US-BAXTER-2013BAX049911

PATIENT
  Age: 76 Year
  Sex: Female
  Weight: 55.21 kg

DRUGS (2)
  1. GAMMAGARD LIQUID [Suspect]
     Indication: IMMUNODEFICIENCY COMMON VARIABLE
     Route: 058
     Dates: start: 20131203, end: 20131203
  2. GAMMAGARD LIQUID [Suspect]
     Indication: SECONDARY IMMUNODEFICIENCY

REACTIONS (6)
  - Headache [Recovered/Resolved]
  - Pruritus [Recovered/Resolved]
  - Abdominal distension [Unknown]
  - Cough [Recovered/Resolved]
  - Diarrhoea [Unknown]
  - Photophobia [Recovered/Resolved]
